FAERS Safety Report 21845103 (Version 1)
Quarter: 2023Q1

REPORT INFORMATION
  Report Type: Spontaneous
  Country: BR (occurrence: BR)
  Receive Date: 20230110
  Receipt Date: 20230110
  Transmission Date: 20230418
  Serious: Yes (Other)
  Sender: FDA-Public Use
  Company Number: BR-BAXTER-2023BAX009870

PATIENT
  Age: 66 Year
  Sex: Female

DRUGS (22)
  1. DOXORUBICIN [Suspect]
     Active Substance: DOXORUBICIN
     Indication: Plasma cell myeloma
     Dosage: OCTOBER 2022, KRD PACE
     Route: 065
  2. DOXORUBICIN [Suspect]
     Active Substance: DOXORUBICIN
     Indication: Pleural effusion
  3. DOXORUBICIN [Suspect]
     Active Substance: DOXORUBICIN
     Indication: Plasmacytoma
  4. CYCLOPHOSPHAMIDE [Suspect]
     Active Substance: CYCLOPHOSPHAMIDE
     Indication: Plasma cell myeloma
     Dosage: AUGUST 2022, DECP, MADE 2 CYCLES
     Route: 065
  5. CYCLOPHOSPHAMIDE [Suspect]
     Active Substance: CYCLOPHOSPHAMIDE
     Indication: Pleural effusion
     Dosage: SEPTEMBER 2022, DECP, MADE 2 CYCLES
     Route: 065
  6. CYCLOPHOSPHAMIDE [Suspect]
     Active Substance: CYCLOPHOSPHAMIDE
     Indication: Plasmacytoma
     Dosage: OCTOBER 2022, KRD PACE
     Route: 065
  7. ETOPOSIDE [Suspect]
     Active Substance: ETOPOSIDE
     Indication: Plasma cell myeloma
     Dosage: AUGUST 2022, DECP, MADE 2 CYCLES
     Route: 065
  8. ETOPOSIDE [Suspect]
     Active Substance: ETOPOSIDE
     Indication: Pleural effusion
     Dosage: SEPTEMBER 2022, DECP, MADE 2 CYCLES
     Route: 065
  9. ETOPOSIDE [Suspect]
     Active Substance: ETOPOSIDE
     Indication: Plasmacytoma
     Dosage: OCTOBER 2022, KRD PACE
     Route: 065
  10. CISPLATIN [Suspect]
     Active Substance: CISPLATIN
     Indication: Plasma cell myeloma
     Dosage: AUGUST 2022, DECP, MADE 2 CYCLES
     Route: 065
  11. CISPLATIN [Suspect]
     Active Substance: CISPLATIN
     Indication: Pleural effusion
     Dosage: SEPTEMBER 2022, DECP, MADE 2 CYCLES
     Route: 065
  12. CISPLATIN [Suspect]
     Active Substance: CISPLATIN
     Indication: Plasmacytoma
     Dosage: OCTOBER 2022, KRD PACE
     Route: 065
  13. DEXAMETHASONE [Suspect]
     Active Substance: DEXAMETHASONE
     Indication: Plasma cell myeloma
     Dosage: AUGUST 2022, DECP, MADE 2 CYCLES
     Route: 065
  14. DEXAMETHASONE [Suspect]
     Active Substance: DEXAMETHASONE
     Indication: Pleural effusion
     Dosage: SEPTEMBER 2022, DECP, MADE 2 CYCLES
     Route: 065
  15. DEXAMETHASONE [Suspect]
     Active Substance: DEXAMETHASONE
     Dosage: OCTOBER 2022, KRD PACE
     Route: 065
  16. CARFILZOMIB [Suspect]
     Active Substance: CARFILZOMIB
     Indication: Plasma cell myeloma
     Dosage: OCTOBER 2022, KRD PACE
     Route: 065
  17. CARFILZOMIB [Suspect]
     Active Substance: CARFILZOMIB
     Indication: Pleural effusion
  18. CARFILZOMIB [Suspect]
     Active Substance: CARFILZOMIB
     Indication: Plasmacytoma
  19. LENALIDOMIDE [Suspect]
     Active Substance: LENALIDOMIDE
     Indication: Plasma cell myeloma
     Dosage: OCTOBER 2022, KRD PACE
     Route: 065
  20. LENALIDOMIDE [Suspect]
     Active Substance: LENALIDOMIDE
     Indication: Pleural effusion
  21. LENALIDOMIDE [Suspect]
     Active Substance: LENALIDOMIDE
     Indication: Plasmacytoma
  22. MELPHALAN [Suspect]
     Active Substance: MELPHALAN
     Indication: Plasma cell myeloma
     Dosage: NOVEMBER 2022, 200MG/M?
     Route: 065

REACTIONS (4)
  - Plasmacytoma [Unknown]
  - Pleural effusion [Unknown]
  - Disease progression [Unknown]
  - Therapy partial responder [Unknown]
